FAERS Safety Report 13257534 (Version 1)
Quarter: 2017Q1

REPORT INFORMATION
  Report Type: Spontaneous
  Country: FR (occurrence: FR)
  Receive Date: 20170221
  Receipt Date: 20170221
  Transmission Date: 20170428
  Serious: Yes (Other)
  Sender: FDA-Public Use
  Company Number: FR-PFIZER INC-2017069064

PATIENT
  Age: 14 Year
  Sex: Female
  Weight: 42.5 kg

DRUGS (5)
  1. VORICONAZOLE. [Interacting]
     Active Substance: VORICONAZOLE
     Indication: BRONCHOPULMONARY ASPERGILLOSIS
     Dosage: UNK, 2X/DAY ( MEAN 7.5 MG/KG)
     Route: 042
  2. VORICONAZOLE. [Interacting]
     Active Substance: VORICONAZOLE
     Dosage: UNK
     Route: 042
  3. VORICONAZOLE. [Interacting]
     Active Substance: VORICONAZOLE
     Dosage: UNK, (DOSE INCREASE (UP TO 8.75 MG/KG/12 H)
  4. VORICONAZOLE. [Suspect]
     Active Substance: VORICONAZOLE
     Indication: BRONCHOPULMONARY ASPERGILLOSIS
     Dosage: UNK, 2X/DAY (7.5 MG/KG/12 H)
     Route: 048
  5. VINCRISTINE SULFATE. [Interacting]
     Active Substance: VINCRISTINE SULFATE
     Indication: ACUTE LYMPHOCYTIC LEUKAEMIA
     Dosage: UNK, CYCLIC

REACTIONS (3)
  - Drug interaction [Unknown]
  - Encephalopathy [Recovered/Resolved]
  - Hallucinations, mixed [Recovered/Resolved]
